FAERS Safety Report 5310217-X (Version None)
Quarter: 2007Q2

REPORT INFORMATION
  Report Type: 
  Country: None (occurrence: None)
  Receive Date: 20070427
  Receipt Date: 20070417
  Transmission Date: 20071010
  Serious: Yes (Other)
  Sender: FDA-Public Use
  Company Number: JP-ROCHE-484912

PATIENT
  Age: 16 Year
  Sex: Male

DRUGS (5)
  1. TAMIFLU [Suspect]
     Route: 048
     Dates: start: 20070223, end: 20070223
  2. CLARITHROMYCIN [Concomitant]
     Route: 048
     Dates: start: 20070223, end: 20070224
  3. ACDEAM [Concomitant]
     Dosage: GENERIC REPORTED AS LYSOMZYME HYDROCHLORIDE.
     Route: 048
     Dates: start: 20070223, end: 20070224
  4. MUCOSOLVAN [Concomitant]
     Route: 048
     Dates: start: 20070223, end: 20070224
  5. COCARL [Concomitant]
     Route: 048
     Dates: start: 20070223, end: 20070224

REACTIONS (1)
  - DEPRESSED LEVEL OF CONSCIOUSNESS [None]
